FAERS Safety Report 9459790 (Version 2)
Quarter: 2014Q1

REPORT INFORMATION
  Report Type: Spontaneous
  Country: GB (occurrence: GB)
  Receive Date: 20130815
  Receipt Date: 20140122
  Transmission Date: 20141002
  Serious: Yes (Other)
  Sender: FDA-Public Use
  Company Number: GB-ASTRAZENECA-2013SE62365

PATIENT
  Sex: Female

DRUGS (5)
  1. SEROQUEL [Suspect]
     Dosage: RANBAXY, 150 MG UNKNOWN FREQUENCY
     Route: 065
  2. SEROQUEL [Suspect]
     Dosage: GENERIC, 150 MG UNKNOWN
     Route: 065
  3. SEROQUEL [Suspect]
     Route: 048
  4. SEROQUEL [Suspect]
     Dosage: GENERIC
     Route: 065
  5. ANTIDEPRESSANTS NOS [Concomitant]
     Indication: DEPRESSION

REACTIONS (5)
  - Diarrhoea [Unknown]
  - Incontinence [Unknown]
  - Insomnia [Unknown]
  - Weight increased [Unknown]
  - Drug ineffective [Unknown]
